FAERS Safety Report 5445611-X (Version None)
Quarter: 2007Q3

REPORT INFORMATION
  Report Type: 
  Country: None (occurrence: None)
  Receive Date: 20070906
  Receipt Date: 20070827
  Transmission Date: 20080115
  Serious: Yes (Hospitalization)
  Sender: FDA-Public Use
  Company Number: CA-ABBOTT-07P-028-0378826-00

PATIENT
  Sex: Female
  Weight: 31.78 kg

DRUGS (1)
  1. HUMIRA [Suspect]
     Indication: CROHN'S DISEASE
     Route: 058
     Dates: start: 20070222

REACTIONS (2)
  - ILL-DEFINED DISORDER [None]
  - LARGE INTESTINE OPERATION [None]
